FAERS Safety Report 16148800 (Version 4)
Quarter: 2019Q2

REPORT INFORMATION
  Report Type: Report from Study
  Country: CA (occurrence: CA)
  Receive Date: 20190402
  Receipt Date: 20190530
  Transmission Date: 20190711
  Serious: Yes (Other)
  Sender: FDA-Public Use
  Company Number: PHHY2017CA159101

PATIENT
  Age: 61 Year
  Sex: Female

DRUGS (22)
  1. GABAPENTIN. [Concomitant]
     Active Substance: GABAPENTIN
     Indication: PRODUCT USED FOR UNKNOWN INDICATION
     Route: 065
  2. SANDOSTATIN LAR DEPOT [Suspect]
     Active Substance: OCTREOTIDE ACETATE
     Dosage: UNK
     Route: 030
  3. SANDOSTATIN LAR DEPOT [Suspect]
     Active Substance: OCTREOTIDE ACETATE
     Dosage: 40 MG, Q3W
     Route: 030
  4. SANDOSTATIN [Suspect]
     Active Substance: OCTREOTIDE ACETATE
     Indication: DIARRHOEA
  5. METHADONE [Concomitant]
     Active Substance: METHADONE HYDROCHLORIDE
     Dosage: 36 MG, UNK
  6. SANDOSTATIN LAR DEPOT [Suspect]
     Active Substance: OCTREOTIDE ACETATE
     Dosage: 40 MG, Q2W
     Route: 030
     Dates: start: 20190216
  7. OCTREOTIDE. [Suspect]
     Active Substance: OCTREOTIDE
     Dosage: UNK, BID
     Route: 058
  8. SANDOSTATIN LAR DEPOT [Suspect]
     Active Substance: OCTREOTIDE ACETATE
     Dosage: 40 MG, Q2W
     Route: 030
  9. CODEINE [Concomitant]
     Active Substance: CODEINE
     Indication: PRODUCT USED FOR UNKNOWN INDICATION
     Dosage: UNK
     Route: 065
  10. VIOKASE [Concomitant]
     Active Substance: PANCRELIPASE
     Indication: PRODUCT USED FOR UNKNOWN INDICATION
     Dosage: 3-4 TABLET, QID
     Route: 065
  11. SANDOSTATIN LAR DEPOT [Suspect]
     Active Substance: OCTREOTIDE ACETATE
     Indication: CARCINOID SYNDROME
     Dosage: 30 MG, QMO
     Route: 030
     Dates: start: 20070503
  12. SANDOSTATIN LAR DEPOT [Suspect]
     Active Substance: OCTREOTIDE ACETATE
     Dosage: 40 MG, Q2W
     Route: 030
  13. SANDOSTATIN [Suspect]
     Active Substance: OCTREOTIDE ACETATE
     Indication: CARCINOID SYNDROME
     Dosage: 100 UG, TID
     Route: 058
     Dates: start: 20130214
  14. OCTREOTIDE. [Suspect]
     Active Substance: OCTREOTIDE
     Indication: PRODUCT USED FOR UNKNOWN INDICATION
     Dosage: 100 UG/ML, QD (ONCE OR TWICE A DAY)
     Route: 058
  15. OCTREOTIDE. [Suspect]
     Active Substance: OCTREOTIDE
     Dosage: 2 DF, UNK
     Route: 058
     Dates: start: 20190215
  16. METHADONE [Concomitant]
     Active Substance: METHADONE HYDROCHLORIDE
     Indication: PRODUCT USED FOR UNKNOWN INDICATION
     Dosage: 42 MG, Q8H
     Route: 065
  17. SANDOSTATIN LAR DEPOT [Suspect]
     Active Substance: OCTREOTIDE ACETATE
     Dosage: 40 MG, Q2W
     Route: 030
     Dates: start: 20181205
  18. SANDOSTATIN LAR DEPOT [Suspect]
     Active Substance: OCTREOTIDE ACETATE
     Dosage: UNK
     Route: 030
  19. SANDOSTATIN LAR DEPOT [Suspect]
     Active Substance: OCTREOTIDE ACETATE
     Dosage: 40 MG, Q2W
     Route: 030
  20. SANDOSTATIN [Suspect]
     Active Substance: OCTREOTIDE ACETATE
     Indication: ABDOMINAL PAIN
     Dosage: 50 UG, TID
     Route: 058
     Dates: end: 20130302
  21. GLIKAZID [Concomitant]
     Indication: PRODUCT USED FOR UNKNOWN INDICATION
     Dosage: 30 MG, QD
     Route: 065
  22. SANDOSTATIN LAR DEPOT [Suspect]
     Active Substance: OCTREOTIDE ACETATE
     Dosage: UNK UNK, Q2W
     Route: 030

REACTIONS (24)
  - Chest pain [Unknown]
  - Urinary tract infection [Unknown]
  - Blood urine present [Unknown]
  - Pneumothorax [Unknown]
  - Malignant neoplasm progression [Unknown]
  - Anal incontinence [Unknown]
  - Scab [Recovering/Resolving]
  - Frequent bowel movements [Unknown]
  - Inappropriate schedule of product administration [Unknown]
  - Pleural effusion [Unknown]
  - Dyspnoea [Unknown]
  - Breakthrough pain [Unknown]
  - Blood pressure increased [Unknown]
  - Therapeutic response shortened [Unknown]
  - Needle issue [Unknown]
  - Abdominal pain lower [Not Recovered/Not Resolved]
  - Flushing [Unknown]
  - Carcinoid tumour pulmonary [Unknown]
  - Dyspnoea [Recovered/Resolved]
  - Carcinoid tumour of the small bowel [Unknown]
  - Peripheral swelling [Unknown]
  - Dysuria [Unknown]
  - Pain in extremity [Unknown]
  - Diarrhoea [Unknown]

NARRATIVE: CASE EVENT DATE: 2017
